FAERS Safety Report 10387794 (Version 2)
Quarter: 2014Q3

REPORT INFORMATION
  Report Type: Report from Study
  Country: JP (occurrence: JP)
  Receive Date: 20140815
  Receipt Date: 20140926
  Transmission Date: 20150326
  Serious: Yes (Other)
  Sender: FDA-Public Use
  Company Number: JP-ACTELION-A-CH2014-103391

PATIENT
  Sex: Male

DRUGS (11)
  1. FUROSEMIDE. [Concomitant]
     Active Substance: FUROSEMIDE
  2. ALPROSTADIL ALFADEX [Suspect]
     Active Substance: ALPROSTADIL ALFADEX
     Dosage: 16 ?G, UNK
     Route: 042
     Dates: start: 20131106, end: 20131107
  3. LUNG SURFACTANTS [Concomitant]
  4. CALCIUM GLUCONATE MONOHYDRATE [Concomitant]
  5. OXYGEN. [Concomitant]
     Active Substance: OXYGEN
  6. NITRIC OXIDE. [Suspect]
     Active Substance: NITRIC OXIDE
     Indication: PULMONARY ARTERIAL HYPERTENSION
     Route: 055
  7. ALPROSTADIL ALFADEX [Suspect]
     Active Substance: ALPROSTADIL ALFADEX
     Indication: PULMONARY ARTERIAL HYPERTENSION
     Dosage: 43.4 ?G, UNK
     Route: 042
     Dates: start: 20131105, end: 20131106
  8. AMIKACIN SULFATE. [Concomitant]
     Active Substance: AMIKACIN SULFATE
  9. VELETRI [Suspect]
     Active Substance: EPOPROSTENOL
     Indication: PULMONARY ARTERIAL HYPERTENSION
     Dosage: 6.5 NG/KG, PER MIN
     Route: 051
     Dates: start: 20131105
  10. VELETRI [Suspect]
     Active Substance: EPOPROSTENOL
     Dosage: 1.1 NG/KG, PER MIN
     Route: 051
     Dates: end: 20131107
  11. AMPICILLIN SODIUM. [Concomitant]
     Active Substance: AMPICILLIN SODIUM

REACTIONS (1)
  - Gastritis haemorrhagic [Recovered/Resolved]

NARRATIVE: CASE EVENT DATE: 20131105
